FAERS Safety Report 8325554-4 (Version None)
Quarter: 2012Q2

REPORT INFORMATION
  Report Type: 
  Country: None (occurrence: None)
  Receive Date: 20120427
  Receipt Date: 20120416
  Transmission Date: 20120825
  Serious: Yes (Other)
  Sender: FDA-Public Use
  Company Number: JPI-P-019557

PATIENT
  Age: 40 Year
  Sex: Female

DRUGS (6)
  1. XYREM [Suspect]
     Indication: NARCOLEPSY
     Dosage: 6 GM (3 GM, 2 IN 1 D), ORAL
     Route: 048
     Dates: start: 20090901
  2. SIMVASTATIN [Concomitant]
  3. FEXOFENADINE HYDROCHLORIDE [Concomitant]
  4. AMPHETAMINE, DEXTROAMPHETAMINE MIXED SALTS [Concomitant]
  5. CALCIFEROL [Concomitant]
  6. ARMODAFINIL [Concomitant]

REACTIONS (5)
  - FEMALE ORGASMIC DISORDER [None]
  - LOWER LIMB FRACTURE [None]
  - UNDERDOSE [None]
  - LIBIDO INCREASED [None]
  - ACCIDENT [None]
